FAERS Safety Report 17558330 (Version 1)
Quarter: 2020Q1

REPORT INFORMATION
  Report Type: Report from Study
  Country: US (occurrence: US)
  Receive Date: 20200319
  Receipt Date: 20200319
  Transmission Date: 20200409
  Serious: Yes (Other)
  Sender: FDA-Public Use
  Company Number: US-AUROBINDO-AUR-APL-2020-014128

PATIENT
  Age: 24 Year
  Sex: Female

DRUGS (4)
  1. FOLOTYN [Suspect]
     Active Substance: PRALATREXATE
     Indication: HAEMOPHAGOCYTIC LYMPHOHISTIOCYTOSIS
  2. PREDNISONE. [Concomitant]
     Active Substance: PREDNISONE
     Indication: PRODUCT USED FOR UNKNOWN INDICATION
     Dosage: 1 MILLIGRAM/KILOGRAM
     Route: 065
  3. FOLOTYN [Suspect]
     Active Substance: PRALATREXATE
     Indication: T-CELL LYMPHOMA RECURRENT
     Dosage: 30 MILLIGRAM/SQ. METER, EVERY WEEK (TWO CYCLES)
     Route: 042
  4. BEXAROTENE. [Concomitant]
     Active Substance: BEXAROTENE
     Indication: PRODUCT USED FOR UNKNOWN INDICATION
     Dosage: 150 MILLIGRAM, ONCE A DAY
     Route: 065

REACTIONS (3)
  - Sinusitis fungal [Unknown]
  - Disease recurrence [Unknown]
  - Mucosal inflammation [Recovered/Resolved]
